FAERS Safety Report 20135372 (Version 1)
Quarter: 2021Q4

REPORT INFORMATION
  Report Type: Spontaneous
  Country: US (occurrence: None)
  Receive Date: 20211130
  Receipt Date: 20211130
  Transmission Date: 20220304
  Serious: No
  Sender: FDA-Public Use
  Company Number: None

PATIENT
  Age: 22 Year
  Sex: Male
  Weight: 66.4 kg

DRUGS (1)
  1. BAT [Suspect]
     Active Substance: EQUINE BOTULINUM NEUROTOXIN A/B/C/D/E/F/G IMMUNE FAB2
     Indication: Botulism
     Dosage: OTHER QUANTITY : 1 UNKNOWN;?OTHER FREQUENCY : ONCE;?
     Route: 041
     Dates: start: 20211127, end: 20211127

REACTIONS (2)
  - Device programming error [None]
  - Incorrect dose administered [None]

NARRATIVE: CASE EVENT DATE: 20211127
